FAERS Safety Report 7120142-X (Version None)
Quarter: 2010Q4

REPORT INFORMATION
  Report Type: 
  Country: None (occurrence: None)
  Receive Date: 20101123
  Receipt Date: 20101116
  Transmission Date: 20110411
  Serious: Yes (Hospitalization, Other)
  Sender: FDA-Public Use
  Company Number: US-AMGEN-KDL442595

PATIENT

DRUGS (9)
  1. PROCRIT [Suspect]
     Indication: ANAEMIA
     Dosage: 15000 IU, Q2WK
     Route: 058
  2. PIOGLITAZONE HCL [Concomitant]
     Dosage: 30 MG, QD
     Route: 048
  3. LOSARTAN POTASSIUM [Concomitant]
     Dosage: 100 MG, QD
     Route: 048
  4. FOLIC ACID [Concomitant]
     Dosage: 1 MG, QD
     Route: 048
  5. IRON [Concomitant]
     Dosage: 325 MG, QD
     Route: 048
  6. ATORVASTATIN CALCIUM [Concomitant]
     Dosage: 40 MG, QD
     Route: 048
  7. CILOSTAZOL [Concomitant]
     Dosage: 100 MG, BID
     Route: 048
  8. GEMFIBROZIL [Concomitant]
     Dosage: 600 MG, BID
     Route: 048
  9. AMLODIPINE [Concomitant]
     Dosage: 5 MG, BID
     Route: 048

REACTIONS (6)
  - ABDOMINAL PAIN UPPER [None]
  - DIARRHOEA [None]
  - GANGRENE [None]
  - HOSPITALISATION [None]
  - IMPAIRED HEALING [None]
  - PERIPHERAL ISCHAEMIA [None]
